FAERS Safety Report 9539082 (Version 1)
Quarter: 2013Q3

REPORT INFORMATION
  Report Type: Spontaneous
  Country: DK (occurrence: FR)
  Receive Date: 20130920
  Receipt Date: 20130920
  Transmission Date: 20140515
  Serious: Yes (Death)
  Sender: FDA-Public Use
  Company Number: FR-FRI-1000048936

PATIENT
  Age: 76 Year
  Sex: Male

DRUGS (6)
  1. ESCITALOPRAM [Suspect]
     Dosage: 1 DF
     Route: 048
     Dates: start: 20130813, end: 20130821
  2. XARELTO [Suspect]
     Indication: ATRIAL FIBRILLATION
     Dosage: 1 DF
     Route: 048
     Dates: start: 20130503, end: 20130821
  3. XANAX [Concomitant]
     Dosage: 1 DF
     Route: 048
  4. FLECAINE [Concomitant]
     Dosage: 1 DF
     Route: 048
  5. INEXIUM [Concomitant]
     Dosage: 1 DF
     Route: 048
  6. SERESTA [Concomitant]
     Dosage: 10 MG

REACTIONS (1)
  - Cerebral haemorrhage [Fatal]
